FAERS Safety Report 12827423 (Version 1)
Quarter: 2016Q4

REPORT INFORMATION
  Report Type: Spontaneous
  Country: US (occurrence: US)
  Receive Date: 20161007
  Receipt Date: 20161007
  Transmission Date: 20170207
  Serious: No
  Sender: FDA-Public Use
  Company Number: US-INDIVIOR LIMITED-INDV-083804-2015

PATIENT
  Age: 34 Year
  Sex: Female

DRUGS (1)
  1. SUBOXONE [Suspect]
     Active Substance: BUPRENORPHINE HYDROCHLORIDE\NALOXONE HYDROCHLORIDE
     Indication: DRUG DEPENDENCE
     Dosage: 8 MG, QD
     Route: 060
     Dates: start: 201509

REACTIONS (8)
  - Headache [Not Recovered/Not Resolved]
  - Rash generalised [Not Recovered/Not Resolved]
  - Anxiety [Not Recovered/Not Resolved]
  - Drug hypersensitivity [Unknown]
  - Peripheral swelling [Not Recovered/Not Resolved]
  - Mouth swelling [Not Recovered/Not Resolved]
  - Urticaria [Not Recovered/Not Resolved]
  - Local swelling [Not Recovered/Not Resolved]

NARRATIVE: CASE EVENT DATE: 201509
